FAERS Safety Report 12817729 (Version 2)
Quarter: 2017Q1

REPORT INFORMATION
  Report Type: Report from Study
  Country: JP (occurrence: JP)
  Receive Date: 20161006
  Receipt Date: 20170216
  Transmission Date: 20170428
  Serious: Yes (Hospitalization, Other)
  Sender: FDA-Public Use
  Company Number: JP-AMGEN-JPNCT2016137230

PATIENT
  Age: 78 Year
  Sex: Female
  Weight: 43 kg

DRUGS (56)
  1. CRAVIT [Suspect]
     Active Substance: LEVOFLOXACIN
     Indication: PYREXIA
     Dosage: 500 MG, UNK
     Route: 048
     Dates: start: 20150514, end: 20150517
  2. CRAVIT [Suspect]
     Active Substance: LEVOFLOXACIN
     Indication: C-REACTIVE PROTEIN INCREASED
     Dosage: 250 MG, UNK
     Route: 048
     Dates: start: 20150729, end: 20150804
  3. OZEX [Suspect]
     Active Substance: TOSUFLOXACIN TOSYLATE
     Indication: PNEUMONIA
     Dosage: 450 MG, UNK
     Route: 048
     Dates: start: 20150923, end: 20151123
  4. CEFEPIME [Suspect]
     Active Substance: CEFEPIME HYDROCHLORIDE
     Dosage: 3 G, UNK
     Route: 065
     Dates: start: 20150715, end: 20150721
  5. ACLACINON [Suspect]
     Active Substance: ACLARUBICIN HYDROCHLORIDE
     Dosage: 18 MG, UNK
     Route: 065
     Dates: start: 20151207, end: 20151209
  6. ELCITONIN [Concomitant]
     Active Substance: ELCATONIN
     Indication: HYPERPARATHYROIDISM PRIMARY
     Dosage: 80 IU, UNK
     Route: 065
     Dates: start: 20150405, end: 20160314
  7. ZOMETA [Concomitant]
     Active Substance: ZOLEDRONIC ACID
     Indication: HYPERPARATHYROIDISM PRIMARY
     Dosage: 3 MG, UNK
     Route: 041
     Dates: start: 20150615, end: 20150615
  8. VIDAZA [Concomitant]
     Active Substance: AZACITIDINE
     Dosage: 60 MG, UNK
     Route: 065
     Dates: start: 20150803, end: 20151126
  9. CYLOCIDE [Concomitant]
     Active Substance: CYTARABINE
     Dosage: 26 MG, UNK
     Route: 065
     Dates: start: 20151207, end: 20151219
  10. HYDREA [Concomitant]
     Active Substance: HYDROXYUREA
     Indication: MYELODYSPLASTIC SYNDROME
     Dosage: 500 MG, UNK
     Route: 048
     Dates: start: 20160218, end: 20160323
  11. VASOLAN [Concomitant]
     Active Substance: VERAPAMIL HYDROCHLORIDE
     Dosage: 5 MG, UNK
     Route: 042
     Dates: start: 20160308, end: 20160308
  12. FLAGYL [Suspect]
     Active Substance: METRONIDAZOLE\METRONIDAZOLE HYDROCHLORIDE
     Indication: CLOSTRIDIUM DIFFICILE COLITIS
     Dosage: 250 MG, UNK
     Route: 048
     Dates: start: 20150701
  13. GRACEVIT [Suspect]
     Active Substance: SITAFLOXACIN
     Dosage: 100 MG, UNK
     Route: 048
     Dates: start: 20160312, end: 20160320
  14. OMEPRAZOLE. [Concomitant]
     Active Substance: OMEPRAZOLE
     Dosage: 20 MG, UNK
     Route: 065
     Dates: start: 20150610, end: 20150702
  15. STARASID [Concomitant]
     Active Substance: CYTARABINE OCFOSFATE
     Indication: MYELODYSPLASTIC SYNDROME
     Dosage: 100 MG, UNK
     Route: 048
     Dates: start: 20160310, end: 20160322
  16. ROCEPHIN [Suspect]
     Active Substance: CEFTRIAXONE SODIUM
     Indication: PRODUCT USED FOR UNKNOWN INDICATION
     Dosage: 2 G, UNK
     Route: 065
     Dates: start: 20150607
  17. ZOSYN [Suspect]
     Active Substance: PIPERACILLIN SODIUM\TAZOBACTAM SODIUM
     Dosage: 13.5 G, UNK
     Route: 065
     Dates: start: 20160113, end: 20160217
  18. VANCOMYCIN [Suspect]
     Active Substance: VANCOMYCIN
     Indication: PRODUCT USED FOR UNKNOWN INDICATION
     Dosage: 1 G, UNK
     Route: 041
     Dates: start: 20150614, end: 20150626
  19. VANCOMYCIN [Suspect]
     Active Substance: VANCOMYCIN
     Dosage: 1.5 G, UNK
     Route: 041
     Dates: start: 20160115, end: 20160204
  20. CEFDINIR. [Suspect]
     Active Substance: CEFDINIR
     Indication: PRODUCT USED FOR UNKNOWN INDICATION
     Dosage: 300 MG, UNK
     Route: 048
     Dates: start: 20150708, end: 20150714
  21. FINIBAX [Suspect]
     Active Substance: DORIPENEM MONOHYDRATE
     Indication: PNEUMONIA
     Dosage: 1.5 G, UNK
     Route: 041
     Dates: start: 20150914, end: 20150923
  22. GRACEVIT [Suspect]
     Active Substance: SITAFLOXACIN
     Indication: PRODUCT USED FOR UNKNOWN INDICATION
     Dosage: 100 MG, UNK
     Route: 048
     Dates: start: 20160218, end: 20160228
  23. CYLOCIDE [Concomitant]
     Active Substance: CYTARABINE
     Indication: MYELODYSPLASTIC SYNDROME
     Dosage: 13 MG, UNK
     Route: 065
     Dates: start: 20151202, end: 20151202
  24. AMBROXOL HYDROCHLORIDE [Concomitant]
     Active Substance: AMBROXOL HYDROCHLORIDE
     Dosage: 45 MG, UNK
     Route: 048
     Dates: start: 20160124, end: 20160127
  25. VASOLAN [Concomitant]
     Active Substance: VERAPAMIL HYDROCHLORIDE
     Dosage: 5 MG, UNK
     Route: 042
     Dates: start: 20160305, end: 20160305
  26. CINACALCET HCL [Suspect]
     Active Substance: CINACALCET HYDROCHLORIDE
     Dosage: 25 MG, QD
     Route: 048
     Dates: start: 20150813
  27. FLUCONAZOLE. [Suspect]
     Active Substance: FLUCONAZOLE
     Indication: PRODUCT USED FOR UNKNOWN INDICATION
     Dosage: 100 MG, UNK
     Route: 048
     Dates: start: 20151207, end: 20160123
  28. FLUCONAZOLE. [Suspect]
     Active Substance: FLUCONAZOLE
     Dosage: 100 MG, UNK
     Route: 048
     Dates: start: 20160213, end: 20160228
  29. ZOSYN [Suspect]
     Active Substance: PIPERACILLIN SODIUM\TAZOBACTAM SODIUM
     Indication: PRODUCT USED FOR UNKNOWN INDICATION
     Dosage: 9 G, UNK
     Route: 065
     Dates: start: 20150608, end: 20150614
  30. ZOSYN [Suspect]
     Active Substance: PIPERACILLIN SODIUM\TAZOBACTAM SODIUM
     Dosage: 13.5 G, UNK
     Route: 065
     Dates: start: 20160229, end: 20160311
  31. BARAMYCIN [Suspect]
     Active Substance: BACITRACIN\NEOMYCIN SULFATE
     Indication: INFECTED DERMAL CYST
     Dosage: UNK
     Route: 061
     Dates: start: 20150629, end: 20150701
  32. VIDAZA [Concomitant]
     Active Substance: AZACITIDINE
     Indication: MYELODYSPLASTIC SYNDROME
     Dosage: 100 MG, UNK
     Route: 065
     Dates: start: 20150803, end: 20151126
  33. LULICON [Suspect]
     Active Substance: LULICONAZOLE
     Indication: PRODUCT USED FOR UNKNOWN INDICATION
     Dosage: UNK
     Route: 061
     Dates: start: 20150622, end: 20150701
  34. FINIBAX [Suspect]
     Active Substance: DORIPENEM MONOHYDRATE
     Indication: PYREXIA
     Dosage: 1.5 G, UNK
     Route: 041
     Dates: start: 20150819, end: 20150824
  35. MIYA-BM [Suspect]
     Active Substance: CLOSTRIDIUM BUTYRICUM SPORES STRAIN M-55
     Indication: DIARRHOEA
     Dosage: 3 G, UNK
     Route: 048
     Dates: start: 20151210, end: 20160112
  36. CANCIDAS [Suspect]
     Active Substance: CASPOFUNGIN ACETATE
     Indication: PRODUCT USED FOR UNKNOWN INDICATION
     Dosage: UNK
     Route: 041
     Dates: start: 20160123, end: 20160212
  37. MAGNESIUM OXIDE. [Concomitant]
     Active Substance: MAGNESIUM OXIDE
     Dosage: 990 MG, UNK
     Route: 048
     Dates: start: 20150803, end: 20151122
  38. CINACALCET HCL [Suspect]
     Active Substance: CINACALCET HYDROCHLORIDE
     Dosage: 25 MG, QD
     Route: 048
     Dates: start: 20150416
  39. OZEX [Suspect]
     Active Substance: TOSUFLOXACIN TOSYLATE
     Dosage: 350 MG, UNK
     Route: 048
     Dates: start: 20151207
  40. ZOSYN [Suspect]
     Active Substance: PIPERACILLIN SODIUM\TAZOBACTAM SODIUM
     Dosage: 13.5 G, UNK
     Route: 065
     Dates: start: 20160320
  41. ACLACINON [Suspect]
     Active Substance: ACLARUBICIN HYDROCHLORIDE
     Indication: MYELODYSPLASTIC SYNDROME
     Dosage: 18 MG, UNK
     Route: 065
     Dates: start: 20151202, end: 20151202
  42. GRANISETRON [Concomitant]
     Active Substance: GRANISETRON
     Indication: MYELODYSPLASTIC SYNDROME
     Dosage: 1 MG, UNK
     Route: 065
     Dates: start: 20150803, end: 20151126
  43. CRAVIT [Suspect]
     Active Substance: LEVOFLOXACIN
     Dosage: 250 MG, UNK
     Route: 041
     Dates: start: 20150610
  44. CEFEPIME [Suspect]
     Active Substance: CEFEPIME HYDROCHLORIDE
     Dosage: 3 G, UNK
     Route: 065
     Dates: start: 20160104
  45. LASIX [Concomitant]
     Active Substance: FUROSEMIDE
     Dosage: 10 MG, UNK
     Route: 065
     Dates: start: 20150608, end: 20160115
  46. GRAN [Concomitant]
     Active Substance: FILGRASTIM
     Indication: MYELODYSPLASTIC SYNDROME
     Dosage: 300 MUG, UNK
     Route: 065
     Dates: start: 20151202, end: 20151202
  47. GRAN [Concomitant]
     Active Substance: FILGRASTIM
     Dosage: 300 MUG, UNK
     Route: 065
     Dates: start: 20151207, end: 20151219
  48. MAXIPIME [Suspect]
     Active Substance: CEFEPIME HYDROCHLORIDE
     Indication: PYELONEPHRITIS
     Dosage: 3 G, UNK
     Route: 042
     Dates: start: 20150504, end: 20150513
  49. CEFEPIME [Suspect]
     Active Substance: CEFEPIME HYDROCHLORIDE
     Indication: PYREXIA
     Dosage: 3 G, UNK
     Route: 065
     Dates: start: 20150630, end: 20150702
  50. CEFEPIME [Suspect]
     Active Substance: CEFEPIME HYDROCHLORIDE
     Dosage: 3 G, UNK
     Route: 065
     Dates: start: 20151202, end: 20151206
  51. LASIX [Concomitant]
     Active Substance: FUROSEMIDE
     Indication: CARDIAC FAILURE
     Dosage: 20 MG, UNK
     Route: 048
     Dates: start: 20150608, end: 20160115
  52. ELCITONIN [Concomitant]
     Active Substance: ELCATONIN
     Dosage: 40 IU, UNK
     Route: 065
     Dates: start: 20150405, end: 20160314
  53. RINDERON V [Concomitant]
     Active Substance: BETAMETHASONE VALERATE
     Dosage: 4 MG, UNK
     Route: 065
     Dates: start: 20150610, end: 20150614
  54. GASTER [Concomitant]
     Active Substance: FAMOTIDINE
     Dosage: 20 MG, UNK
     Route: 065
     Dates: start: 20160229, end: 20160315
  55. CINACALCET HCL [Suspect]
     Active Substance: CINACALCET HYDROCHLORIDE
     Indication: HYPERPARATHYROIDISM PRIMARY
     Dosage: 25 MG, BID
     Route: 048
     Dates: start: 20150327
  56. CINACALCET HCL [Suspect]
     Active Substance: CINACALCET HYDROCHLORIDE
     Dosage: 25 MG, QD
     Route: 048
     Dates: start: 20160315

REACTIONS (25)
  - Myelodysplastic syndrome [Not Recovered/Not Resolved]
  - Hypertension [Recovering/Resolving]
  - Pyrexia [Recovering/Resolving]
  - Pyrexia [Recovering/Resolving]
  - Pneumonia [Recovered/Resolved]
  - Pyelonephritis [Recovered/Resolved]
  - Pyrexia [Recovering/Resolving]
  - Infected dermal cyst [Recovering/Resolving]
  - Hyperuricaemia [Recovering/Resolving]
  - Clostridium difficile colitis [Recovering/Resolving]
  - Nausea [Recovering/Resolving]
  - Blood alkaline phosphatase increased [Recovered/Resolved]
  - Pyrexia [Recovered/Resolved]
  - Pyrexia [Recovering/Resolving]
  - Bronchitis [Recovered/Resolved]
  - Pneumonia [Recovering/Resolving]
  - Pneumonia [Recovering/Resolving]
  - Pyrexia [Recovering/Resolving]
  - Constipation [Recovering/Resolving]
  - C-reactive protein increased [Recovered/Resolved]
  - Drug eruption [Recovering/Resolving]
  - Atrial fibrillation [Recovered/Resolved]
  - Pneumonia [Recovering/Resolving]
  - Skin candida [Recovering/Resolving]
  - Diarrhoea [Recovered/Resolved]

NARRATIVE: CASE EVENT DATE: 20150328
